FAERS Safety Report 20642211 (Version 1)
Quarter: 2022Q1

REPORT INFORMATION
  Report Type: Spontaneous
  Country: IL (occurrence: IL)
  Receive Date: 20220328
  Receipt Date: 20220328
  Transmission Date: 20220423
  Serious: Yes (Life-Threatening, Hospitalization)
  Sender: FDA-Public Use
  Company Number: IL-BoehringerIngelheim-2022-BI-161699

PATIENT
  Age: 40 Year
  Sex: Female

DRUGS (1)
  1. OFEV [Suspect]
     Active Substance: NINTEDANIB
     Indication: Scleroderma

REACTIONS (2)
  - Pulmonary function test decreased [Not Recovered/Not Resolved]
  - Coronavirus infection [Not Recovered/Not Resolved]
